FAERS Safety Report 12040150 (Version 3)
Quarter: 2016Q2

REPORT INFORMATION
  Report Type: Spontaneous
  Country: AU (occurrence: AU)
  Receive Date: 20160208
  Receipt Date: 20160518
  Transmission Date: 20160815
  Serious: Yes (Hospitalization)
  Sender: FDA-Public Use
  Company Number: AU-AMGEN-AUSSP2016012257

PATIENT
  Age: 49 Year
  Sex: Female
  Weight: 52 kg

DRUGS (13)
  1. PROLIA [Suspect]
     Active Substance: DENOSUMAB
     Indication: OSTEOPOROSIS
     Dosage: 60 MG, Q6MO
     Route: 058
     Dates: start: 20151231
  2. FERRUM H [Concomitant]
     Dosage: 100/2ML, UNK
     Route: 065
  3. DOXY [Concomitant]
     Active Substance: DOXYCYCLINE
     Dosage: 50 MG, PC
     Route: 048
  4. LEXAPRO [Concomitant]
     Active Substance: ESCITALOPRAM OXALATE
     Dosage: 20 MG, QD
     Route: 048
  5. NEXIUM [Concomitant]
     Active Substance: ESOMEPRAZOLE MAGNESIUM
     Dosage: 40 MG, QD
     Route: 048
  6. VITAMIN D [Concomitant]
     Active Substance: CHOLECALCIFEROL
     Route: 065
  7. EDRONAX [Concomitant]
     Active Substance: REBOXETINE MESYLATE
     Dosage: 4 MG, BID
     Route: 048
  8. PANADEINE FORTE [Concomitant]
     Active Substance: ACETAMINOPHEN\CODEINE PHOSPHATE
     Dosage: UNK UNK, 1-2 Q6H, P.R.N
     Route: 048
  9. NEO B12 [Concomitant]
     Dosage: 1000 MUL/ML, QWK
     Route: 065
  10. LIVIAL [Concomitant]
     Active Substance: TIBOLONE
     Dosage: 2.5 MG, QD
     Route: 048
  11. VALDOXAN [Concomitant]
     Active Substance: AGOMELATINE
     Dosage: 25 MG, 2 NOCTE
  12. BUSPAR [Concomitant]
     Active Substance: BUSPIRONE HYDROCHLORIDE
     Dosage: 5 MG, TID
     Route: 048
  13. SOFRADEX [Concomitant]
     Active Substance: DEXAMETHASONE\FRAMYCETIN SULFATE\GRAMICIDIN
     Dosage: 8 ML, UNK
     Route: 065

REACTIONS (16)
  - Off label use [Unknown]
  - Pain in extremity [Not Recovered/Not Resolved]
  - Drug hypersensitivity [Unknown]
  - Iron deficiency [Unknown]
  - Anxiety [Unknown]
  - Nausea [Unknown]
  - Back pain [Unknown]
  - Myalgia [Unknown]
  - Headache [Unknown]
  - Chills [Unknown]
  - Depression [Unknown]
  - C-reactive protein increased [Unknown]
  - Pyrexia [Unknown]
  - Escherichia urinary tract infection [Unknown]
  - Osteoporosis [Unknown]
  - Bone pain [Unknown]

NARRATIVE: CASE EVENT DATE: 201601
